FAERS Safety Report 10028880 (Version 1)
Quarter: 2014Q1

REPORT INFORMATION
  Report Type: Spontaneous
  Country: DE (occurrence: DE)
  Receive Date: 20140321
  Receipt Date: 20140321
  Transmission Date: 20141002
  Serious: Yes (Death)
  Sender: FDA-Public Use
  Company Number: DE-MYLANLABS-2014S1005517

PATIENT
  Age: 51 Year
  Sex: Male
  Weight: 68 kg

DRUGS (5)
  1. DIPHENHYDRAMINE [Suspect]
     Indication: COMPLETED SUICIDE
     Route: 048
  2. DIPHENHYDRAMINE [Suspect]
     Indication: OFF LABEL USE
     Route: 048
  3. TETRAZEPAM [Suspect]
     Indication: COMPLETED SUICIDE
     Route: 065
  4. NICOTINE [Suspect]
     Indication: COMPLETED SUICIDE
  5. METHADONE [Concomitant]
     Route: 065

REACTIONS (2)
  - Toxicity to various agents [Fatal]
  - Completed suicide [Fatal]
